FAERS Safety Report 14316008 (Version 1)
Quarter: 2017Q4

REPORT INFORMATION
  Report Type: Report from Study
  Country: None (occurrence: US)
  Receive Date: 20171221
  Receipt Date: 20171221
  Transmission Date: 20180321
  Serious: Yes (Other)
  Sender: FDA-Public Use
  Company Number: US-ABBVIE-17K-163-2194772-00

PATIENT
  Age: 43 Year
  Sex: Male
  Weight: 136.2 kg

DRUGS (2)
  1. COZAAR [Concomitant]
     Active Substance: LOSARTAN POTASSIUM
     Indication: HYPERTENSION
  2. HUMIRA [Suspect]
     Active Substance: ADALIMUMAB
     Indication: CROHN^S DISEASE
     Route: 058

REACTIONS (3)
  - Diabetes mellitus [Not Recovered/Not Resolved]
  - Anal fistula [Recovering/Resolving]
  - Rectal abscess [Recovered/Resolved]

NARRATIVE: CASE EVENT DATE: 2015
